FAERS Safety Report 12247333 (Version 1)
Quarter: 2016Q2

REPORT INFORMATION
  Report Type: Spontaneous
  Country: ES (occurrence: ES)
  Receive Date: 20160407
  Receipt Date: 20160407
  Transmission Date: 20160815
  Serious: Yes (Other)
  Sender: FDA-Public Use
  Company Number: PHHY2016ES044395

PATIENT
  Age: 72 Year
  Sex: Female

DRUGS (4)
  1. BELIMUMAB [Concomitant]
     Active Substance: BELIMUMAB
     Indication: THROMBOCYTOPENIA
     Dosage: 10 MG, QMO
     Route: 065
  2. MYCOPHENOLIC ACID. [Suspect]
     Active Substance: MYCOPHENOLIC ACID
     Indication: THROMBOCYTOPENIA
     Dosage: 1 G, QD
     Route: 065
  3. ROMIPLOSTIM [Concomitant]
     Active Substance: ROMIPLOSTIM
     Indication: THROMBOCYTOPENIA
     Dosage: UNK
     Route: 065
  4. PREDNISONE. [Suspect]
     Active Substance: PREDNISONE
     Indication: THROMBOCYTOPENIA
     Dosage: 5 MG, QD
     Route: 065

REACTIONS (3)
  - Thrombocytopenia [Unknown]
  - Therapeutic response decreased [Unknown]
  - Product use issue [Unknown]
